FAERS Safety Report 4862527-8 (Version None)
Quarter: 2005Q4

REPORT INFORMATION
  Report Type: 
  Country: None (occurrence: None)
  Receive Date: 20051221
  Receipt Date: 20051206
  Transmission Date: 20060501
  Serious: Yes (Other)
  Sender: FDA-Public Use
  Company Number: 2005/03160

PATIENT
  Age: 25 Year
  Sex: Female

DRUGS (3)
  1. FLOVENT [Suspect]
     Indication: ASTHMA
     Dosage: 250MCG PER DAY
     Dates: start: 20050414, end: 20051122
  2. ADVAIR DISKUS 250/50 [Suspect]
     Indication: ASTHMA
     Dosage: 500MCG PER DAY
     Dates: start: 20051122
  3. DEPO-PROVERA [Concomitant]
     Indication: CONTRACEPTION
     Dosage: 150MG AS DIRECTED
     Route: 030
     Dates: start: 20040401

REACTIONS (3)
  - MOUTH ULCERATION [None]
  - OEDEMA [None]
  - OEDEMA PERIPHERAL [None]
